FAERS Safety Report 8493494-6 (Version None)
Quarter: 2012Q3

REPORT INFORMATION
  Report Type: 
  Country: None (occurrence: None)
  Receive Date: 20120706
  Receipt Date: 20120628
  Transmission Date: 20120928
  Serious: Yes (Hospitalization)
  Sender: FDA-Public Use
  Company Number: US-ABBOTT-12P-163-0951542-00

PATIENT
  Sex: Female

DRUGS (4)
  1. HUMIRA [Suspect]
     Indication: CROHN'S DISEASE
     Dosage: INDUCTION:  BASELINE
     Route: 058
     Dates: start: 20081001, end: 20081001
  2. HUMIRA [Suspect]
     Dosage: BASELINE:  WEEK 2
     Route: 058
  3. HUMIRA [Suspect]
     Route: 058
     Dates: start: 20101001
  4. HUMIRA [Suspect]
     Route: 058

REACTIONS (1)
  - PYREXIA [None]
